FAERS Safety Report 6646242-6 (Version None)
Quarter: 2010Q1

REPORT INFORMATION
  Report Type: 
  Country: None (occurrence: None)
  Receive Date: 20100323
  Receipt Date: 20100311
  Transmission Date: 20100710
  Serious: Yes (Life-Threatening, Other)
  Sender: FDA-Public Use
  Company Number: US-PFIZER INC-2010032517

PATIENT
  Sex: Female
  Weight: 58 kg

DRUGS (3)
  1. NIFEDIPINE [Suspect]
     Indication: HYPERTENSION
     Dosage: 60 MG, 1X/DAY
     Route: 048
     Dates: start: 19970101
  2. NIFEDIPINE [Suspect]
     Indication: CARDIAC DISORDER
     Dosage: UNK
     Dates: start: 20050601
  3. SYNTHROID [Concomitant]
     Dosage: UNK, DAILY

REACTIONS (2)
  - DRUG HYPERSENSITIVITY [None]
  - MALAISE [None]
